FAERS Safety Report 13917011 (Version 1)
Quarter: 2017Q3

REPORT INFORMATION
  Report Type: Spontaneous
  Country: US (occurrence: None)
  Receive Date: 20170827
  Receipt Date: 20170827
  Transmission Date: 20171127
  Serious: Yes (Hospitalization)
  Sender: FDA-Public Use
  Company Number: None

PATIENT
  Age: 35 Year
  Sex: Female

DRUGS (1)
  1. NERLYNX [Suspect]
     Active Substance: NERATINIB
     Indication: BREAST CANCER
     Dosage: 240MG DAILY TAKE 6 TABLETS(240MG) BY
     Dates: start: 20170822

REACTIONS (1)
  - Movement disorder [None]

NARRATIVE: CASE EVENT DATE: 20170822
